FAERS Safety Report 8343586-7 (Version None)
Quarter: 2012Q2

REPORT INFORMATION
  Report Type: 
  Country: None (occurrence: None)
  Receive Date: 20120508
  Receipt Date: 20100603
  Transmission Date: 20120825
  Serious: No
  Sender: FDA-Public Use
  Company Number: US-TEVA-2010002837

PATIENT
  Sex: Male
  Weight: 73.5 kg

DRUGS (14)
  1. TREANDA [Suspect]
     Route: 042
     Dates: start: 20100518, end: 20100519
  2. OXYCONTIN [Concomitant]
  3. HYDROCORTISONE [Concomitant]
  4. TYLENOL (CAPLET) [Concomitant]
  5. PREVACID [Concomitant]
  6. PREDNISONE TAB [Concomitant]
     Indication: HODGKIN'S DISEASE
     Dates: start: 20100301
  7. DIGOXIN [Concomitant]
  8. RITUXAN [Concomitant]
     Indication: HODGKIN'S DISEASE
     Dates: start: 20100301
  9. REMERON [Concomitant]
  10. TREANDA [Suspect]
     Indication: HODGKIN'S DISEASE
     Route: 042
     Dates: start: 20100303, end: 20100304
  11. VINBLASTINE SULFATE [Concomitant]
     Indication: HODGKIN'S DISEASE
     Dates: start: 20100301
  12. DILAUDID [Concomitant]
  13. ZYPREXA [Concomitant]
  14. BENADRYL [Concomitant]

REACTIONS (7)
  - DIZZINESS [None]
  - FEELING HOT [None]
  - FLUSHING [None]
  - DYSPNOEA [None]
  - HYPERHIDROSIS [None]
  - INFUSION RELATED REACTION [None]
  - PALLOR [None]
